FAERS Safety Report 7794572-7 (Version None)
Quarter: 2011Q3

REPORT INFORMATION
  Report Type: 
  Country: None (occurrence: None)
  Receive Date: 20110930
  Receipt Date: 20110915
  Transmission Date: 20111222
  Serious: Yes (Hospitalization)
  Sender: FDA-Public Use
  Company Number: 2011SP041013

PATIENT
  Age: 46 Year
  Sex: Male
  Weight: 101 kg

DRUGS (7)
  1. VIRAFERONPEG [Suspect]
     Indication: HEPATITIS C
     Dosage: 150 MCG; SC
     Route: 058
  2. LEVOTHYROXINE SODIUM [Concomitant]
  3. PROPRANOLOL [Concomitant]
  4. INDAPAMIDE [Concomitant]
  5. BOCEPREVIR (SCH-503034) [Suspect]
     Indication: HEPATITIS C
     Dosage: 800 MG;TID;PO
     Dates: start: 20110510, end: 20110722
  6. TIEMONIUM [Concomitant]
  7. REBETOL [Suspect]
     Indication: HEPATITIS C
     Dosage: 1200 MG;	;PO
     Route: 048

REACTIONS (12)
  - HAEMOLYTIC ANAEMIA [None]
  - RENAL FAILURE [None]
  - CHILLS [None]
  - THROMBOCYTOPENIA [None]
  - GOUT [None]
  - CARDIAC MURMUR [None]
  - HYPOKALAEMIA [None]
  - ABDOMINAL DISTENSION [None]
  - BACK PAIN [None]
  - PYREXIA [None]
  - ARTHRITIS [None]
  - BURSITIS [None]
